FAERS Safety Report 16348794 (Version 2)
Quarter: 2019Q2

REPORT INFORMATION
  Report Type: Spontaneous
  Country: JP (occurrence: JP)
  Receive Date: 20190523
  Receipt Date: 20190606
  Transmission Date: 20190711
  Serious: Yes (Other)
  Sender: FDA-Public Use
  Company Number: JP-JNJFOC-20190530063

PATIENT
  Age: 48 Year
  Sex: Male

DRUGS (4)
  1. POLARAMINE [Concomitant]
     Active Substance: DEXCHLORPHENIRAMINE MALEATE
     Route: 065
  2. REMICADE [Suspect]
     Active Substance: INFLIXIMAB
     Indication: COLITIS ULCERATIVE
     Route: 042
  3. SEISHOKU [Concomitant]
     Active Substance: SODIUM CHLORIDE
     Route: 065
  4. GLYPHAGEN [Concomitant]
     Route: 065

REACTIONS (5)
  - Hypoaesthesia [Unknown]
  - Myalgia [Unknown]
  - Hernia [Unknown]
  - Arthralgia [Unknown]
  - Muscular weakness [Unknown]
